FAERS Safety Report 6958606-1 (Version None)
Quarter: 2010Q3

REPORT INFORMATION
  Report Type: 
  Country: None (occurrence: None)
  Receive Date: 20100831
  Receipt Date: 20100830
  Transmission Date: 20110219
  Serious: Yes (Other)
  Sender: FDA-Public Use
  Company Number: CO-ROCHE-723845

PATIENT
  Sex: Male

DRUGS (2)
  1. CELLCEPT [Suspect]
     Route: 048
     Dates: start: 20040728
  2. LOSARTAN [Concomitant]
     Route: 048

REACTIONS (1)
  - TRANSPLANT REJECTION [None]
